FAERS Safety Report 4946909-1 (Version None)
Quarter: 2006Q1

REPORT INFORMATION
  Report Type: 
  Country: None (occurrence: None)
  Receive Date: 20060317
  Receipt Date: 20060306
  Transmission Date: 20060701
  Serious: Yes (Death, Other)
  Sender: FDA-Public Use
  Company Number: JP-JNJFOC-20060105330

PATIENT
  Age: 59 Year
  Sex: Female

DRUGS (8)
  1. TAVANIC [Suspect]
     Indication: URINARY TRACT INFECTION
     Route: 048
  2. TAVANIC [Suspect]
     Route: 048
  3. TAVANIC [Suspect]
     Route: 042
  4. TAVANIC [Suspect]
     Route: 042
  5. VANCOMYCIN [Concomitant]
     Indication: FEBRILE NEUTROPENIA
     Route: 042
     Dates: start: 20051212, end: 20051216
  6. PARACETAMOL [Concomitant]
     Route: 042
     Dates: start: 20051208, end: 20051228
  7. OMEPRAZOLE [Concomitant]
     Route: 048
     Dates: start: 20051208, end: 20051228
  8. NEUPOGEN [Concomitant]
     Indication: PANCYTOPENIA
     Route: 058
     Dates: start: 20051208, end: 20051211

REACTIONS (5)
  - ANGIONEUROTIC OEDEMA [None]
  - FEBRILE NEUTROPENIA [None]
  - MULTI-ORGAN FAILURE [None]
  - SEPSIS [None]
  - TOXIC EPIDERMAL NECROLYSIS [None]
